FAERS Safety Report 22751800 (Version 2)
Quarter: 2024Q2

REPORT INFORMATION
  Report Type: Spontaneous
  Country: US (occurrence: US)
  Receive Date: 20230726
  Receipt Date: 20240528
  Transmission Date: 20240716
  Serious: No
  Sender: FDA-Public Use
  Company Number: US-BRACCO-2023US01687

PATIENT
  Sex: Female

DRUGS (1)
  1. LIQUID E-Z-PAQUE [Suspect]
     Active Substance: BARIUM SULFATE
     Indication: X-ray gastrointestinal tract
     Dosage: UNK
     Route: 048
     Dates: start: 20230406, end: 20230406

REACTIONS (4)
  - Diarrhoea [Not Recovered/Not Resolved]
  - Hot flush [Not Recovered/Not Resolved]
  - Fatigue [Not Recovered/Not Resolved]
  - Nausea [Not Recovered/Not Resolved]

NARRATIVE: CASE EVENT DATE: 20230406
